FAERS Safety Report 25834189 (Version 1)
Quarter: 2025Q3

REPORT INFORMATION
  Report Type: Spontaneous
  Country: EU (occurrence: EU)
  Receive Date: 20250923
  Receipt Date: 20250923
  Transmission Date: 20251021
  Serious: Yes (Other)
  Sender: ROCHE
  Company Number: None

PATIENT
  Age: 3 Decade
  Sex: Male

DRUGS (2)
  1. RITUXIMAB [Suspect]
     Active Substance: RITUXIMAB
     Indication: Neuromyelitis optica spectrum disorder
     Dosage: STRENGTH: UNKNOWN
     Route: 065
     Dates: start: 2010, end: 2012
  2. RITUXIMAB [Suspect]
     Active Substance: RITUXIMAB
     Indication: Multiple sclerosis

REACTIONS (1)
  - Humoral immune defect [Not Recovered/Not Resolved]

NARRATIVE: CASE EVENT DATE: 20120101
